FAERS Safety Report 13717933 (Version 1)
Quarter: 2017Q3

REPORT INFORMATION
  Report Type: Spontaneous
  Country: US (occurrence: US)
  Receive Date: 20170705
  Receipt Date: 20170705
  Transmission Date: 20171127
  Serious: Yes (Hospitalization)
  Sender: FDA-Public Use
  Company Number: US-UPSHER-SMITH LABORATORIES, INC.-17000236

PATIENT
  Age: 79 Year
  Sex: Female

DRUGS (2)
  1. PERCOCET [Concomitant]
     Active Substance: ACETAMINOPHEN\OXYCODONE HYDROCHLORIDE
     Indication: SPINAL OPERATION
     Dosage: UNK, QID
     Route: 048
  2. MORPHINE SULFATE. [Suspect]
     Active Substance: MORPHINE SULFATE
     Indication: SPINAL OPERATION
     Dosage: 100 MG, BID
     Route: 048
     Dates: start: 20170116, end: 20170118

REACTIONS (1)
  - Hallucination [None]

NARRATIVE: CASE EVENT DATE: 20170118
